FAERS Safety Report 9713374 (Version 1)
Quarter: 2013Q4

REPORT INFORMATION
  Report Type: Report from Study
  Country: NL (occurrence: NL)
  Receive Date: 20131126
  Receipt Date: 20131126
  Transmission Date: 20140711
  Serious: Yes (Disabling)
  Sender: FDA-Public Use
  Company Number: NL-MYLANLABS-2013S1025990

PATIENT
  Sex: Female

DRUGS (8)
  1. ALENDRONIC ACID [Suspect]
     Indication: OSTEOPOROSIS
     Route: 065
  2. RABEPRAZOLE [Suspect]
     Route: 065
  3. DIAZEPAM [Concomitant]
     Route: 065
  4. PARACETAMOL [Concomitant]
     Route: 065
  5. AMLODIPINE [Concomitant]
     Route: 065
  6. HYPROMELLOSE [Concomitant]
     Route: 047
  7. IRBESARTAN [Concomitant]
     Route: 065
  8. CHLORTALIDONE [Concomitant]
     Route: 065

REACTIONS (1)
  - Vision blurred [Not Recovered/Not Resolved]
